FAERS Safety Report 4720949-X (Version None)
Quarter: 2005Q3

REPORT INFORMATION
  Report Type: 
  Country: None (occurrence: None)
  Receive Date: 20050720
  Receipt Date: 20050705
  Transmission Date: 20060218
  Serious: Yes (Hospitalization)
  Sender: FDA-Public Use
  Company Number: 215754

PATIENT
  Age: 74 Year
  Sex: Female
  Weight: 56 kg

DRUGS (12)
  1. RITUXIMAB(RITUXIMAB) CONC FOR SOLUTION FOR INFUSION [Suspect]
     Indication: CHRONIC LYMPHOCYTIC LEUKAEMIA
     Dosage: SEE IMAGE
     Route: 042
     Dates: start: 20050125, end: 20050125
  2. RITUXIMAB(RITUXIMAB) CONC FOR SOLUTION FOR INFUSION [Suspect]
     Indication: CHRONIC LYMPHOCYTIC LEUKAEMIA
     Dosage: SEE IMAGE
     Route: 042
     Dates: end: 20050622
  3. .. [Suspect]
  4. FLUDARABINE PHOSPHATE [Suspect]
     Indication: CHRONIC LYMPHOCYTIC LEUKAEMIA
     Dosage: 25 MG/M2,Q4W,INTRAVENOUS
     Route: 042
     Dates: start: 20050126, end: 20050624
  5. CYCLOPHOSPHAMIDE [Suspect]
     Indication: CHRONIC LYMPHOCYTIC LEUKAEMIA
     Dosage: 250 MG/M2,Q4W, INTRAVENOUS
     Route: 042
     Dates: start: 20050126, end: 20050624
  6. ACETAMINOPHEN [Concomitant]
  7. CEFTAZIDIM (CEFTAZIDIME) [Concomitant]
  8. GENTAMICIN [Concomitant]
  9. FILGRASTIM (FILGRASTIM) [Concomitant]
  10. METOCLOPRAMIDE (METOCLOPRAMIDE HYDROCHLORIDE) [Concomitant]
  11. BUTYLSCOPOLAMMONII BROMIDUM (SCOPOLAMINE BUTYLBROMIDE) [Concomitant]
  12. INFESOL (AMINO ACIDS) [Concomitant]

REACTIONS (19)
  - ANAEMIA [None]
  - ANOREXIA [None]
  - ASTHENIA [None]
  - CARDIAC ARREST [None]
  - DYSPNOEA EXERTIONAL [None]
  - ESCHERICHIA INFECTION [None]
  - GENERAL PHYSICAL HEALTH DETERIORATION [None]
  - HEPATIC ENCEPHALOPATHY [None]
  - HEPATITIS [None]
  - HYPERSENSITIVITY [None]
  - INTERSTITIAL LUNG DISEASE [None]
  - NEUTROPENIA [None]
  - PANCYTOPENIA [None]
  - PERIORBITAL OEDEMA [None]
  - PNEUMONITIS [None]
  - SOMNOLENCE [None]
  - THROMBOCYTOPENIA [None]
  - TRANSAMINASES INCREASED [None]
  - WEIGHT DECREASED [None]
